FAERS Safety Report 22250948 (Version 1)
Quarter: 2023Q2

REPORT INFORMATION
  Report Type: Spontaneous
  Country: US (occurrence: None)
  Receive Date: 20230424
  Receipt Date: 20230424
  Transmission Date: 20230722
  Serious: No
  Sender: FDA-Public Use
  Company Number: None

PATIENT
  Age: 48 Year
  Sex: Female

DRUGS (16)
  1. ACTEMRA [Suspect]
     Active Substance: TOCILIZUMAB
     Dosage: OTHER QUANTITY : 162 MG/0.9ML;?FREQUENCY : WEEKLY;?
     Route: 058
     Dates: start: 20210126
  2. ACTEMRA [Suspect]
     Active Substance: TOCILIZUMAB
     Dosage: FREQUENCY : WEEKLY;?
     Route: 058
  3. AMLODIPINE [Concomitant]
  4. ARAVA [Concomitant]
     Active Substance: LEFLUNOMIDE
  5. CICLOPIROX SOL [Concomitant]
  6. ESZOPICLONE [Concomitant]
  7. GABAPENTIN [Concomitant]
  8. HYDROCHLOROTHIAZIDE [Concomitant]
     Active Substance: HYDROCHLOROTHIAZIDE
  9. LEFLUNOMIDE [Concomitant]
     Active Substance: LEFLUNOMIDE
  10. MELOXICAM [Concomitant]
  11. ONDANSETRON [Concomitant]
  12. OXYCODONE [Concomitant]
  13. PRAMIPEXOLE [Concomitant]
     Active Substance: PRAMIPEXOLE
  14. PREDNISONE [Concomitant]
  15. PREVALITE POW [Concomitant]
  16. SULFASALAZIN [Concomitant]

REACTIONS (5)
  - Therapy interrupted [None]
  - Condition aggravated [None]
  - Loss of personal independence in daily activities [None]
  - Pain [None]
  - Surgery [None]

NARRATIVE: CASE EVENT DATE: 20221018
